FAERS Safety Report 4444733-X (Version None)
Quarter: 2004Q3

REPORT INFORMATION
  Report Type: 
  Country: None (occurrence: None)
  Receive Date: 20040907
  Receipt Date: 20040907
  Transmission Date: 20050211
  Serious: No
  Sender: FDA-Public Use
  Company Number: None

PATIENT

DRUGS (2)
  1. EPHEDRINE SUL CAP [Suspect]
     Dosage: INJECTION
  2. EPINEPHRINE [Suspect]
     Dosage: INECTABLE

REACTIONS (7)
  - ANURIA [None]
  - BLOOD PRESSURE DECREASED [None]
  - BLOOD PRESSURE INCREASED [None]
  - FLUSHING [None]
  - HEART RATE DECREASED [None]
  - MEDICATION ERROR [None]
  - TACHYCARDIA [None]
